FAERS Safety Report 20777207 (Version 1)
Quarter: 2022Q2

REPORT INFORMATION
  Report Type: Spontaneous
  Country: CN (occurrence: CN)
  Receive Date: 20220503
  Receipt Date: 20220503
  Transmission Date: 20220720
  Serious: Yes (Life-Threatening)
  Sender: FDA-Public Use
  Company Number: CN-BAUSCH-BL-2022-010573

PATIENT
  Age: 77 Year
  Sex: Female
  Weight: 49 kg

DRUGS (3)
  1. TIMOLOL MALEATE [Suspect]
     Active Substance: TIMOLOL MALEATE
     Indication: Intraocular pressure increased
     Dosage: 2 DROPS, 1 IN 12 HOURS
     Route: 047
     Dates: start: 20220416, end: 20220416
  2. GASTRODIN [Concomitant]
     Active Substance: GASTRODIN
     Indication: Dizziness
     Dosage: INTRAVENOUS TITRATION
     Route: 042
  3. NIACIN [Concomitant]
     Active Substance: NIACIN
     Indication: Palliative care
     Route: 042

REACTIONS (4)
  - Cardiac disorder [Recovering/Resolving]
  - Condition aggravated [Recovering/Resolving]
  - Palpitations [Recovering/Resolving]
  - Sinus bradycardia [Recovering/Resolving]

NARRATIVE: CASE EVENT DATE: 20220416
